FAERS Safety Report 9275939 (Version 2)
Quarter: 2013Q2

REPORT INFORMATION
  Report Type: Spontaneous
  Country: US (occurrence: US)
  Receive Date: 20130507
  Receipt Date: 20130507
  Transmission Date: 20140414
  Serious: Yes (Hospitalization, Other)
  Sender: FDA-Public Use
  Company Number: US-009507513-1305USA002598

PATIENT
  Sex: Male

DRUGS (6)
  1. SINGULAIR [Suspect]
     Route: 064
  2. REBIF [Suspect]
     Indication: MULTIPLE SCLEROSIS
     Dosage: 44 MICROGRAM, TIW
     Route: 064
     Dates: start: 20021113, end: 200902
  3. COLACE [Suspect]
     Indication: CONSTIPATION
     Route: 064
  4. VENTOLINE (ALBUTEROL SULFATE) [Suspect]
     Indication: ASTHMA
     Route: 064
  5. IRON (UNSPECIFIED) [Concomitant]
     Indication: ANAEMIA
     Route: 064
  6. VITAMINS (UNSPECIFIED) [Concomitant]
     Indication: ANAEMIA

REACTIONS (7)
  - Low birth weight baby [Unknown]
  - Premature baby [Unknown]
  - Anaemia [Recovered/Resolved]
  - Cerebral haemorrhage [Recovered/Resolved]
  - Cyanosis [Recovered/Resolved]
  - Jaundice [Recovered/Resolved]
  - Foetal exposure during pregnancy [Recovered/Resolved]
